FAERS Safety Report 7865807-7 (Version None)
Quarter: 2011Q4

REPORT INFORMATION
  Report Type: 
  Country: None (occurrence: None)
  Receive Date: 20111028
  Receipt Date: 20110228
  Transmission Date: 20120403
  Serious: No
  Sender: FDA-Public Use
  Company Number: US-GLAXOSMITHKLINE-A0915869A

PATIENT
  Age: 71 Year
  Sex: Female

DRUGS (6)
  1. VITAMIN TAB [Concomitant]
  2. CALCIUM CARBONATE [Concomitant]
  3. ALLERGY SHOTS [Concomitant]
  4. FLUTICASONE PROPIONATE [Concomitant]
  5. ADVAIR DISKUS 100/50 [Suspect]
     Indication: MULTIPLE ALLERGIES
     Dosage: 1PUFF TWICE PER DAY
     Route: 055
     Dates: start: 20010101
  6. HEARTBURN MEDICATION [Concomitant]

REACTIONS (2)
  - TONGUE DISORDER [None]
  - CANDIDIASIS [None]
